FAERS Safety Report 15954167 (Version 2)
Quarter: 2019Q4

REPORT INFORMATION
  Report Type: Spontaneous
  Country: NL (occurrence: FR)
  Receive Date: 20190212
  Receipt Date: 20191031
  Transmission Date: 20200122
  Serious: Yes (Life-Threatening)
  Sender: FDA-Public Use
  Company Number: FR-FRESENIUS KABI-FK201901205

PATIENT
  Age: 70 Year
  Sex: Male

DRUGS (1)
  1. GLUCOSE (MANUFACTURER UNKNOWN) [Suspect]
     Active Substance: DEXTROSE
     Indication: FLUID OVERLOAD
     Route: 042
     Dates: start: 20190112, end: 20190114

REACTIONS (5)
  - Hyponatraemia [Recovering/Resolving]
  - Product dose omission [Recovering/Resolving]
  - Coma [Recovering/Resolving]
  - Product prescribing error [Recovering/Resolving]
  - Hypokalaemia [Recovered/Resolved]

NARRATIVE: CASE EVENT DATE: 20190114
